FAERS Safety Report 7110636-5 (Version None)
Quarter: 2010Q4

REPORT INFORMATION
  Report Type: 
  Country: None (occurrence: None)
  Receive Date: 20101118
  Receipt Date: 20080908
  Transmission Date: 20110411
  Serious: Yes (Other)
  Sender: FDA-Public Use
  Company Number: FI-ROCHE-741247

PATIENT

DRUGS (2)
  1. HERCEPTIN [Suspect]
     Route: 065
  2. LAPATINIB [Concomitant]

REACTIONS (2)
  - DIARRHOEA [None]
  - MALIGNANT NEOPLASM PROGRESSION [None]
